FAERS Safety Report 6676259-7 (Version None)
Quarter: 2010Q2

REPORT INFORMATION
  Report Type: 
  Country: None (occurrence: None)
  Receive Date: 20100412
  Receipt Date: 20100406
  Transmission Date: 20101027
  Serious: Yes (Hospitalization)
  Sender: FDA-Public Use
  Company Number: FR-ASTRAZENECA-2010SE15384

PATIENT
  Age: 790 Month
  Sex: Female

DRUGS (1)
  1. TENORMIN [Suspect]
     Indication: PROPHYLAXIS
     Route: 048
     Dates: start: 20070101, end: 20100106

REACTIONS (1)
  - ASTHMATIC CRISIS [None]
